FAERS Safety Report 10449777 (Version 2)
Quarter: 2016Q3

REPORT INFORMATION
  Report Type: Spontaneous
  Country: US (occurrence: US)
  Receive Date: 20140912
  Receipt Date: 20160727
  Transmission Date: 20161109
  Serious: No
  Sender: FDA-Public Use
  Company Number: US-PFIZER INC-2014250387

PATIENT
  Age: 50 Year
  Sex: Female
  Weight: 73.47 kg

DRUGS (4)
  1. SALAGEN [Concomitant]
     Active Substance: PILOCARPINE HYDROCHLORIDE
     Indication: SALIVARY HYPERSECRETION
     Dosage: UNK
  2. LYRICA [Suspect]
     Active Substance: PREGABALIN
     Indication: PROCEDURAL PAIN
     Dosage: 150 MG, 1X/DAY
     Route: 048
     Dates: start: 2012
  3. LYRICA [Suspect]
     Active Substance: PREGABALIN
     Indication: NERVE INJURY
     Dosage: 75 MG, 3X/DAY
     Route: 048
     Dates: start: 201405
  4. LYRICA [Suspect]
     Active Substance: PREGABALIN
     Indication: NEURALGIA

REACTIONS (12)
  - Vision blurred [Unknown]
  - Mental disorder [Recovered/Resolved]
  - Confusional state [Unknown]
  - Dysphonia [Unknown]
  - Pain in extremity [Unknown]
  - Hyperhidrosis [Recovered/Resolved]
  - Stress [Unknown]
  - Feeling abnormal [Unknown]
  - Drug ineffective [Unknown]
  - Swelling [Recovered/Resolved]
  - Constipation [Recovered/Resolved]
  - Weight increased [Recovered/Resolved]
